FAERS Safety Report 7444374-6 (Version None)
Quarter: 2011Q2

REPORT INFORMATION
  Report Type: 
  Country: None (occurrence: None)
  Receive Date: 20110419
  Receipt Date: 20110331
  Transmission Date: 20111010
  Serious: Yes (Other)
  Sender: FDA-Public Use
  Company Number: 20110255

PATIENT
  Age: 40 Year
  Sex: Female

DRUGS (1)
  1. VENOFER [Suspect]
     Indication: HAEMOGLOBIN DECREASED
     Dosage: 500 MG, INTRAVENOUS
     Route: 042
     Dates: start: 20110212, end: 20110213

REACTIONS (2)
  - MEDICATION ERROR [None]
  - INFUSION SITE EXTRAVASATION [None]
